FAERS Safety Report 6782611-1 (Version None)
Quarter: 2010Q2

REPORT INFORMATION
  Report Type: 
  Country: None (occurrence: None)
  Receive Date: 20100621
  Receipt Date: 20100609
  Transmission Date: 20101027
  Serious: Yes (Life-Threatening, Hospitalization)
  Sender: FDA-Public Use
  Company Number: DE-WYE-H15626110

PATIENT
  Age: 42 Year
  Sex: Female

DRUGS (2)
  1. PANTOPRAZOLE [Suspect]
     Indication: REFLUX OESOPHAGITIS
     Dosage: 40 MG AS REQUIRED
     Dates: start: 20100101, end: 20100401
  2. AERIUS [Concomitant]
     Dosage: UNKNOWN

REACTIONS (2)
  - ANAPHYLACTIC SHOCK [None]
  - CIRCULATORY COLLAPSE [None]
